FAERS Safety Report 6473462-6 (Version None)
Quarter: 2009Q4

REPORT INFORMATION
  Report Type: 
  Country: None (occurrence: None)
  Receive Date: 20091204
  Receipt Date: 20081119
  Transmission Date: 20100525
  Serious: Yes (Hospitalization)
  Sender: FDA-Public Use
  Company Number: FR-ELI_LILLY_AND_COMPANY-FR200811004673

PATIENT
  Age: 73 Year
  Sex: Male

DRUGS (11)
  1. CIALIS [Suspect]
     Dosage: 1 D/F, AS NEEDED
     Route: 048
  2. PRAVASTATIN [Concomitant]
     Dosage: 1 D/F, DAILY (1/D)
     Route: 048
  3. ASPIRIN [Concomitant]
     Dosage: 1 D/F, DAILY (1/D)
     Route: 048
  4. ZOXAN LP [Concomitant]
     Dosage: 1 D/F, DAILY (1/D)
     Route: 048
  5. LANSOPRAZOLE [Concomitant]
     Dosage: 1 D/F, DAILY (1/D)
     Route: 048
  6. DIOSMIN [Concomitant]
     Dosage: UNK, UNK
     Route: 048
  7. DIAMICRON [Concomitant]
     Route: 048
  8. SPIRIVA [Concomitant]
     Route: 055
  9. TANAKAN [Concomitant]
     Dosage: 40 MG, DAILY (1/D)
     Route: 048
  10. IBUPROFEN [Concomitant]
     Dates: end: 20080701
  11. PLAVIX [Concomitant]
     Dosage: 75 MG, DAILY (1/D)
     Route: 048

REACTIONS (1)
  - PULMONARY FIBROSIS [None]
